FAERS Safety Report 14385581 (Version 1)
Quarter: 2018Q1

REPORT INFORMATION
  Report Type: Spontaneous
  Country: US (occurrence: US)
  Receive Date: 20180115
  Receipt Date: 20180115
  Transmission Date: 20180509
  Serious: Yes (Other)
  Sender: FDA-Public Use
  Company Number: US-SA-2016SA234373

PATIENT
  Age: 32 Year
  Sex: Female
  Weight: 57.15 kg

DRUGS (8)
  1. DEXAMETHASONE. [Concomitant]
     Active Substance: DEXAMETHASONE
  2. ONDANSETRON [Concomitant]
     Active Substance: ONDANSETRON
  3. NEUPOGEN [Concomitant]
     Active Substance: FILGRASTIM
  4. TAXOTERE [Suspect]
     Active Substance: DOCETAXEL
     Indication: BREAST CANCER FEMALE
     Route: 051
     Dates: start: 20140624, end: 20140624
  5. TAXOTERE [Suspect]
     Active Substance: DOCETAXEL
     Indication: BREAST CANCER FEMALE
     Route: 051
     Dates: start: 20140312, end: 20140312
  6. CARBOPLATIN. [Concomitant]
     Active Substance: CARBOPLATIN
  7. PARAPLATIN [Concomitant]
     Active Substance: CARBOPLATIN
  8. HERCEPTIN [Concomitant]
     Active Substance: TRASTUZUMAB

REACTIONS (5)
  - Anxiety [Unknown]
  - Emotional distress [Unknown]
  - Pain [Unknown]
  - Impaired quality of life [Unknown]
  - Alopecia [Not Recovered/Not Resolved]

NARRATIVE: CASE EVENT DATE: 201412
